FAERS Safety Report 9145496 (Version 1)
Quarter: 2013Q1

REPORT INFORMATION
  Report Type: Spontaneous
  Country: FR (occurrence: FR)
  Receive Date: 20130307
  Receipt Date: 20130307
  Transmission Date: 20140127
  Serious: Yes (Other)
  Sender: FDA-Public Use
  Company Number: FR-ASTRAZENECA-2013SE14173

PATIENT
  Age: 57 Year
  Sex: Female

DRUGS (2)
  1. XEROQUEL [Suspect]
     Indication: BIPOLAR I DISORDER
     Route: 048
  2. ENALAPRIL [Interacting]
     Indication: HYPERTENSION
     Route: 048

REACTIONS (4)
  - Drug interaction [Unknown]
  - Hypertension [Unknown]
  - Syncope [Unknown]
  - Bradycardia [Unknown]
